FAERS Safety Report 6375982-1 (Version None)
Quarter: 2009Q3

REPORT INFORMATION
  Report Type: 
  Country: None (occurrence: None)
  Receive Date: 20090924
  Receipt Date: 20090901
  Transmission Date: 20100115
  Serious: Yes (Other)
  Sender: FDA-Public Use
  Company Number: US-ELI_LILLY_AND_COMPANY-US200909004776

PATIENT
  Sex: Male

DRUGS (1)
  1. HUMALOG MIX 75/25 [Suspect]

REACTIONS (4)
  - BLINDNESS [None]
  - MACULAR DEGENERATION [None]
  - REACTION TO FOOD ADDITIVE [None]
  - VISUAL ACUITY REDUCED [None]
